FAERS Safety Report 5211838-5 (Version None)
Quarter: 2007Q1

REPORT INFORMATION
  Report Type: 
  Country: None (occurrence: None)
  Receive Date: 20070118
  Receipt Date: 20070109
  Transmission Date: 20070707
  Serious: Yes (Hospitalization)
  Sender: FDA-Public Use
  Company Number: 2007CG00049

PATIENT
  Age: 83 Year
  Sex: Male

DRUGS (6)
  1. OMEPRAZOLE [Suspect]
     Route: 048
  2. ASPIRIN [Suspect]
     Indication: CARDIOMYOPATHY
     Route: 048
     Dates: end: 20060608
  3. TEMGESIC [Suspect]
     Indication: HAEMANGIOMA
     Route: 060
  4. MICARDIS [Suspect]
     Indication: ESSENTIAL HYPERTENSION
     Route: 048
     Dates: end: 20060608
  5. NITRODERM [Suspect]
     Indication: ISCHAEMIC CARDIOMYOPATHY
     Route: 062
     Dates: end: 20060618
  6. HEMIGOXINE [Suspect]
     Route: 048
     Dates: end: 20060608

REACTIONS (1)
  - HYPERTHYROIDISM [None]
